FAERS Safety Report 8908952 (Version 2)
Quarter: 2013Q3

REPORT INFORMATION
  Report Type: Report from Study
  Country: JP (occurrence: JP)
  Receive Date: 20121114
  Receipt Date: 20130718
  Transmission Date: 20140515
  Serious: Yes (Hospitalization)
  Sender: FDA-Public Use
  Company Number: JP-VERTEX PHARMACEUTICAL INC.-2012-024447

PATIENT
  Age: 70 Year
  Sex: Female

DRUGS (9)
  1. VX-950 (TELAPREVIR) [Suspect]
     Indication: CHRONIC HEPATITIS C
     Dosage: 1500 MG, QD
     Route: 048
     Dates: start: 20120806, end: 20120810
  2. VX-950 (TELAPREVIR) [Suspect]
     Dosage: 750 MG, QD
     Route: 048
     Dates: start: 20120824, end: 20120830
  3. VX-950 (TELAPREVIR) [Suspect]
     Dosage: 1500 MG, QD
     Route: 048
     Dates: start: 20120831, end: 20120925
  4. REBETOL [Concomitant]
     Dosage: 200 MG, QD
     Route: 048
     Dates: start: 20120806, end: 20120810
  5. REBETOL [Concomitant]
     Dosage: 200 MG, QD
     Route: 048
     Dates: start: 20120824, end: 20120925
  6. PEGINTRON [Concomitant]
     Dosage: 1 ?G/KG, QW
     Route: 058
     Dates: start: 20120806, end: 20120810
  7. PEGINTRON [Concomitant]
     Dosage: 0.75 ?G/KG, QW
     Route: 058
     Dates: start: 20120824, end: 20120830
  8. PEGINTRON [Concomitant]
     Dosage: 1.0 ?G/KG, QW
     Route: 058
     Dates: start: 20120831, end: 20120913
  9. PEGINTRON [Concomitant]
     Dosage: 1.0 ?G/KG, QW
     Route: 058
     Dates: end: 20120925

REACTIONS (1)
  - Colon cancer [Recovered/Resolved]
